FAERS Safety Report 8491022-2 (Version None)
Quarter: 2012Q3

REPORT INFORMATION
  Report Type: 
  Country: None (occurrence: None)
  Receive Date: 20120706
  Receipt Date: 20120628
  Transmission Date: 20120928
  Serious: Yes (Hospitalization)
  Sender: FDA-Public Use
  Company Number: US-BAYER-2012-065085

PATIENT
  Age: 42 Year
  Sex: Female

DRUGS (8)
  1. CLARITIN [Concomitant]
  2. METFORMIN HCL [Concomitant]
     Dosage: 500 MG, UNK
     Dates: start: 20060103, end: 20060321
  3. ALEVE [Concomitant]
     Indication: PAIN
  4. YASMIN [Suspect]
  5. PRASTERONE [Concomitant]
  6. YASMIN [Suspect]
     Dosage: UNK UNK, QD
  7. YASMIN [Suspect]
     Dosage: UNK
  8. FIBERCON [Concomitant]

REACTIONS (2)
  - CEREBROVASCULAR ACCIDENT [None]
  - CAROTID ARTERY STENOSIS [None]
